FAERS Safety Report 4395883-8 (Version None)
Quarter: 2004Q3

REPORT INFORMATION
  Report Type: 
  Country: None (occurrence: None)
  Receive Date: 20040708
  Receipt Date: 20040628
  Transmission Date: 20050211
  Serious: Yes (Other)
  Sender: FDA-Public Use
  Company Number: HQWYE851801JUL04

PATIENT
  Sex: Female

DRUGS (5)
  1. PREMPRO [Suspect]
     Indication: HORMONE REPLACEMENT THERAPY
     Dosage: ORAL
     Route: 048
  2. ESTROGEN NOS (ESTROGEN NOS,) [Suspect]
  3. MPA (MEDROXYPROTESTERONE ACETATE, ) [Suspect]
  4. PREMARIN [Suspect]
     Dosage: ORAL
     Route: 048
  5. PROVERA [Suspect]

REACTIONS (4)
  - BREAST CANCER [None]
  - CARDIAC DISORDER [None]
  - MYOCARDIAL INFARCTION [None]
  - THROMBOSIS [None]
